FAERS Safety Report 13609782 (Version 1)
Quarter: 2017Q2

REPORT INFORMATION
  Report Type: Spontaneous
  Country: US (occurrence: US)
  Receive Date: 20170602
  Receipt Date: 20170602
  Transmission Date: 20170830
  Serious: Yes (Hospitalization)
  Sender: FDA-Public Use
  Company Number: US-PFIZER INC-3218452

PATIENT
  Age: 77 Year
  Sex: Male
  Weight: 91.2 kg

DRUGS (30)
  1. CYTARABINE. [Suspect]
     Active Substance: CYTARABINE
     Indication: ACUTE MYELOID LEUKAEMIA
     Dosage: 20 MG/M2, DAY 1-10 OF ALL CYCLES; 28-DAY CYCLE; 1 IN 1 DAY, FREQ: CYCLICAL
     Route: 058
     Dates: start: 20150708
  2. INVESTIGATIONAL DRUG [Suspect]
     Active Substance: INVESTIGATIONAL PRODUCT
     Dosage: 600 MG, FREQ: 1 DAY; INTERVAL: 1
     Route: 048
     Dates: start: 20150712, end: 20150712
  3. INVESTIGATIONAL DRUG [Suspect]
     Active Substance: INVESTIGATIONAL PRODUCT
     Dosage: 800 MG, FREQ: 1 DAY; INTERVAL: 1
     Route: 048
     Dates: start: 20150713
  4. ACETAMINOPHEN. [Concomitant]
     Active Substance: ACETAMINOPHEN
     Indication: NOCTURIA
     Dosage: 650 MG, FREQ: AS NEEDED
     Route: 048
     Dates: start: 20141217
  5. DOCUSATE [Concomitant]
     Active Substance: DOCUSATE
     Indication: CONSTIPATION
     Dosage: 200 MG, FREQ: 2 DAY; INTERVAL: 1
     Route: 048
     Dates: start: 20130101
  6. NICOTINE. [Concomitant]
     Active Substance: NICOTINE
     Indication: TOBACCO USER
     Dosage: 14 MG, FREQ: 1 DAY; INTERVAL: 1
     Route: 062
     Dates: start: 20150708
  7. SENNA ALEXANDRINA [Concomitant]
     Active Substance: SENNA LEAF
     Indication: CONSTIPATION
     Dosage: 8.6 MG, FREQ: 1 DAY; INTERVAL: 1
     Route: 048
     Dates: start: 20150709
  8. ACETAMINOPHEN. [Concomitant]
     Active Substance: ACETAMINOPHEN
     Indication: TRANSFUSION REACTION
  9. NORMAL SALINE [Concomitant]
     Active Substance: SODIUM CHLORIDE
     Indication: PROPHYLAXIS
  10. PROCHLORPERAZINE MALEATE. [Concomitant]
     Active Substance: PROCHLORPERAZINE MALEATE
     Indication: TRANSFUSION
     Dosage: 10 MG, AS NEEDED; Q4 HOURS; ORAL OR IV
     Dates: start: 20150708, end: 20150713
  11. PROCHLORPERAZINE MALEATE. [Concomitant]
     Active Substance: PROCHLORPERAZINE MALEATE
     Indication: PREMEDICATION
  12. NORMAL SALINE [Concomitant]
     Active Substance: SODIUM CHLORIDE
     Indication: TUMOUR LYSIS SYNDROME
  13. PLAVIX [Concomitant]
     Active Substance: CLOPIDOGREL BISULFATE
     Indication: CORONARY ARTERY DISEASE
     Dosage: 75 MG, FREQ: 1 DAY; INTERVAL: 1
     Route: 048
     Dates: start: 20110101, end: 20150820
  14. TAMSULOSIN HYDROCHLORIDE. [Concomitant]
     Active Substance: TAMSULOSIN HYDROCHLORIDE
     Indication: PROSTATOMEGALY
     Dosage: 0.4 G, FREQ: 1 DAY; INTERVAL: 1
     Route: 048
     Dates: start: 20140101
  15. INVESTIGATIONAL DRUG [Suspect]
     Active Substance: INVESTIGATIONAL PRODUCT
     Indication: ACUTE MYELOID LEUKAEMIA
     Dosage: 100 MG, FREQ: 1 DAY; INTERVAL: 1
     Route: 048
     Dates: start: 20150709, end: 20150709
  16. NORMAL SALINE [Concomitant]
     Active Substance: SODIUM CHLORIDE
     Indication: PRESYNCOPE
     Dosage: 0.9%; SINGLE
     Route: 042
     Dates: start: 20150718, end: 20150718
  17. INVESTIGATIONAL DRUG [Suspect]
     Active Substance: INVESTIGATIONAL PRODUCT
     Dosage: 200 MG, FREQ: 1 DAY; INTERVAL: 1
     Route: 048
     Dates: start: 20150710, end: 20150710
  18. ACETAMINOPHEN. [Concomitant]
     Active Substance: ACETAMINOPHEN
     Indication: INSOMNIA
  19. NORMAL SALINE [Concomitant]
     Active Substance: SODIUM CHLORIDE
     Indication: DIZZINESS
     Dosage: 5000 ML, 0.9%
     Route: 042
     Dates: start: 20150707, end: 20150713
  20. ALLOPURINOL. [Concomitant]
     Active Substance: ALLOPURINOL
     Indication: PROPHYLAXIS
     Dosage: 300 MG, UNK
     Route: 048
     Dates: start: 20150706
  21. MICAFUNGIN [Concomitant]
     Active Substance: MICAFUNGIN
     Indication: ANTIFUNGAL PROPHYLAXIS
     Dosage: 50 MG, FREQ: 1 DAY; INTERVAL: 1
     Route: 042
     Dates: start: 20150707
  22. INVESTIGATIONAL DRUG [Suspect]
     Active Substance: INVESTIGATIONAL PRODUCT
     Dosage: 400 MG, FREQ:1 DAY; INTERVAL: 1
     Route: 048
     Dates: start: 20150711, end: 20150711
  23. ACYCLOVIR /00587301/ [Concomitant]
     Active Substance: ACYCLOVIR
     Indication: ANTIVIRAL PROPHYLAXIS
     Dosage: 800 MG, 1600 MG, FREQ: 1 HOUR; INTERVAL: 12
     Route: 048
     Dates: start: 20150708
  24. AMBISOME [Concomitant]
     Active Substance: AMPHOTERICIN B
     Indication: PNEUMONIA
     Dosage: 3 MG/KG, FREQ: 1 DAY; INTERVAL: 1
     Route: 042
     Dates: start: 20150722, end: 20150808
  25. ALLOPURINOL. [Concomitant]
     Active Substance: ALLOPURINOL
     Indication: TUMOUR LYSIS SYNDROME
  26. METOPROLOL TARTRATE. [Concomitant]
     Active Substance: METOPROLOL TARTRATE
     Indication: HYPERTENSION
     Dosage: 12.5 MG, FREQ: 1 DAY; INTERVAL: 1
     Route: 048
     Dates: start: 20150508
  27. LEVOFLOXACIN. [Concomitant]
     Active Substance: LEVOFLOXACIN
     Indication: NEUTROPENIA
     Dosage: 750 MG, FREQ: 1 DAY; INTERVAL: 1
     Route: 048
     Dates: start: 20150707
  28. LEVOFLOXACIN. [Concomitant]
     Active Substance: LEVOFLOXACIN
     Indication: PROPHYLAXIS
  29. AMBISOME [Concomitant]
     Active Substance: AMPHOTERICIN B
     Indication: BRONCHOPULMONARY ASPERGILLOSIS
     Dosage: 500 MG, FREQ:1 DAY; INTERVAL: 1
     Route: 042
     Dates: start: 20150813, end: 20151005
  30. BENADRYL [Concomitant]
     Active Substance: DIPHENHYDRAMINE HYDROCHLORIDE
     Indication: PREMEDICATION
     Dosage: 12.5 MG, FREQ: 1 DAY; INTERVAL: 1
     Route: 042
     Dates: start: 20150723

REACTIONS (1)
  - Anaemia [Recovered/Resolved]

NARRATIVE: CASE EVENT DATE: 20150824
